FAERS Safety Report 9233289 (Version 2)
Quarter: 2013Q3

REPORT INFORMATION
  Report Type: Spontaneous
  Country: US (occurrence: US)
  Receive Date: 20130416
  Receipt Date: 20130701
  Transmission Date: 20140515
  Serious: Yes (Death, Other)
  Sender: FDA-Public Use
  Company Number: US-PFIZER INC-2013116116

PATIENT
  Age: 54 Year
  Sex: Male

DRUGS (6)
  1. REVATIO [Suspect]
     Indication: PULMONARY ARTERIAL HYPERTENSION
     Dosage: 20 MG, Q 8 HR
     Route: 048
     Dates: start: 20100310
  2. REVATIO [Suspect]
     Indication: CATHETERISATION CARDIAC
     Dosage: 20 MG, 3X/DAY
     Route: 048
     Dates: start: 20100524
  3. COUMADINE [Concomitant]
     Dosage: UNK
  4. AMLODIPINE [Concomitant]
     Dosage: 5 ML, PM
  5. NADOLOL [Concomitant]
     Dosage: UNK
  6. FUROSEMIDE [Concomitant]
     Dosage: UNK

REACTIONS (1)
  - Death [Fatal]
